FAERS Safety Report 4415478-7 (Version None)
Quarter: 2004Q3

REPORT INFORMATION
  Report Type: 
  Country: None (occurrence: None)
  Receive Date: 20040729
  Receipt Date: 20040713
  Transmission Date: 20050211
  Serious: Yes (Other)
  Sender: FDA-Public Use
  Company Number: 196919

PATIENT
  Age: 27 Year
  Sex: Female

DRUGS (1)
  1. AVONEX [Suspect]
     Indication: MULTIPLE SCLEROSIS
     Dosage: 30 MCG QW IM
     Dates: start: 20030727, end: 20040427

REACTIONS (4)
  - ABSCESS [None]
  - HAEMATOMA [None]
  - INJECTION SITE NECROSIS [None]
  - MUSCLE NECROSIS [None]
